FAERS Safety Report 5316940-5 (Version None)
Quarter: 2007Q2

REPORT INFORMATION
  Report Type: 
  Country: None (occurrence: None)
  Receive Date: 20070501
  Receipt Date: 20070501
  Transmission Date: 20071010
  Serious: No
  Sender: FDA-Public Use
  Company Number: None

PATIENT
  Age: 46 Year
  Sex: Female

DRUGS (2)
  1. PRO AIR INHALER [Suspect]
     Indication: ASTHMA
     Dosage: 2 PUFFS  AS NEEDED
     Dates: start: 20070401, end: 20070401
  2. PRO AIR INHALER [Suspect]
     Indication: MULTIPLE ALLERGIES
     Dosage: 2 PUFFS  AS NEEDED
     Dates: start: 20070401, end: 20070401

REACTIONS (1)
  - HYPERSENSITIVITY [None]
